FAERS Safety Report 19811665 (Version 1)
Quarter: 2021Q3

REPORT INFORMATION
  Report Type: Report from Study
  Country: US (occurrence: US)
  Receive Date: 20210910
  Receipt Date: 20210910
  Transmission Date: 20211014
  Serious: Yes (Hospitalization)
  Sender: FDA-Public Use
  Company Number: US-ACADIA PHARMACEUTICALS INC.-ACA-2021-PIM-003209

PATIENT
  Sex: Female

DRUGS (13)
  1. LYRICA [Concomitant]
     Active Substance: PREGABALIN
  2. NUPLAZID [Suspect]
     Active Substance: PIMAVANSERIN TARTRATE
     Indication: PARKINSON^S DISEASE
     Dosage: 34 MILLIGRAM, QD
     Route: 048
     Dates: start: 20210323
  3. SENNA [Concomitant]
     Active Substance: SENNA LEAF\SENNOSIDES\SENNOSIDES A AND B
  4. CARBIDOPA. [Concomitant]
     Active Substance: CARBIDOPA
  5. SEROQUEL [Concomitant]
     Active Substance: QUETIAPINE FUMARATE
  6. CYMBALTA [Concomitant]
     Active Substance: DULOXETINE HYDROCHLORIDE
  7. LISINOPRIL. [Concomitant]
     Active Substance: LISINOPRIL
  8. ATENOLOL. [Concomitant]
     Active Substance: ATENOLOL
  9. HUMALOG [Concomitant]
     Active Substance: INSULIN LISPRO
  10. VITAMIN D3 [Concomitant]
     Active Substance: CHOLECALCIFEROL
  11. LEVODOPA [Concomitant]
     Active Substance: LEVODOPA
  12. QUETIAPINE. [Concomitant]
     Active Substance: QUETIAPINE
  13. ZOFRAN [Concomitant]
     Active Substance: ONDANSETRON HYDROCHLORIDE

REACTIONS (3)
  - Adverse drug reaction [Not Recovered/Not Resolved]
  - Fall [Not Recovered/Not Resolved]
  - Dementia [Not Recovered/Not Resolved]
